FAERS Safety Report 4876137-X (Version None)
Quarter: 2006Q1

REPORT INFORMATION
  Report Type: 
  Country: None (occurrence: None)
  Receive Date: 20060106
  Receipt Date: 20051220
  Transmission Date: 20060701
  Serious: Yes (Life-Threatening, Hospitalization)
  Sender: FDA-Public Use
  Company Number: 13147

PATIENT
  Age: 4 Year
  Sex: Female
  Weight: 24 kg

DRUGS (2)
  1. VINCRISTINE [Suspect]
     Dosage: 105 MG/M2 FREQ IV
     Route: 042
     Dates: start: 20051109, end: 20051109
  2. CARBOPLATIN [Suspect]
     Dosage: 550 MG/M2 IV
     Route: 042
     Dates: start: 20051109, end: 20051109

REACTIONS (2)
  - BRONCHOSPASM [None]
  - URTICARIA [None]
